FAERS Safety Report 9037881 (Version 2)
Quarter: 2013Q2

REPORT INFORMATION
  Report Type: Spontaneous
  Country: US (occurrence: US)
  Receive Date: 20130129
  Receipt Date: 20130425
  Transmission Date: 20140414
  Serious: No
  Sender: FDA-Public Use
  Company Number: US-BAYER-2013-010486

PATIENT
  Age: 52 Year
  Sex: Female
  Weight: 126.8 kg

DRUGS (5)
  1. MIRENA [Suspect]
     Indication: CONTRACEPTION
     Dosage: 20 MCG/24HR, CONT
     Route: 015
     Dates: start: 20130123, end: 20130123
  2. KLONOPIN [Concomitant]
     Indication: ANXIETY
     Dosage: 1 MG, QD
     Dates: start: 20130214
  3. TENORMIN [Concomitant]
     Dosage: 50 MG, BID
     Dates: start: 20110506
  4. COZAAR [Concomitant]
     Dosage: 100 MG, QD
     Dates: start: 20121003
  5. PROCARDIA XL [Concomitant]
     Dosage: 90 MG, QD
     Dates: start: 20120620

REACTIONS (1)
  - Device deployment issue [None]
